FAERS Safety Report 25827010 (Version 1)
Quarter: 2025Q3

REPORT INFORMATION
  Report Type: Spontaneous
  Country: CN (occurrence: CN)
  Receive Date: 20250920
  Receipt Date: 20250920
  Transmission Date: 20251021
  Serious: Yes (Hospitalization)
  Sender: MACLEODS
  Company Number: CN-MACLEODS PHARMA-MAC2025055266

PATIENT

DRUGS (5)
  1. PRAMIPEXOLE [Suspect]
     Active Substance: PRAMIPEXOLE
     Indication: Parkinsonism
     Route: 048
  2. Isophane protamine human insulin [Concomitant]
     Indication: Product used for unknown indication
     Dosage: 21U SC QD
     Route: 058
  3. METFORMIN HYDROCHLORIDE [Concomitant]
     Active Substance: METFORMIN HYDROCHLORIDE
     Indication: Product used for unknown indication
     Route: 048
  4. INDAPAMIDE [Concomitant]
     Active Substance: INDAPAMIDE
     Indication: Product used for unknown indication
     Route: 048
  5. Dopashydrazine [Concomitant]
     Route: 048

REACTIONS (2)
  - Blood potassium decreased [Recovered/Resolved]
  - Inappropriate antidiuretic hormone secretion [Recovered/Resolved]
